FAERS Safety Report 11596251 (Version 11)
Quarter: 2020Q3

REPORT INFORMATION
  Report Type: Report from Study
  Country: DK (occurrence: DK)
  Receive Date: 20151006
  Receipt Date: 20200928
  Transmission Date: 20201102
  Serious: Yes (Hospitalization)
  Sender: FDA-Public Use
  Company Number: DK-ROCHE-1641444

PATIENT
  Age: 69 Year
  Sex: Male
  Weight: 76.3 kg

DRUGS (12)
  1. OBINUTUZUMAB. [Suspect]
     Active Substance: OBINUTUZUMAB
     Indication: CHRONIC LYMPHOCYTIC LEUKAEMIA
     Dosage: MOST RECENT DOSE PRIOR TO THE EVENT WAS RECIEVED ON 30/SEP/2015 AT 10:00
     Route: 042
     Dates: start: 20150930
  2. CHLORAMBUCIL [Suspect]
     Active Substance: CHLORAMBUCIL
     Indication: CHRONIC LYMPHOCYTIC LEUKAEMIA
     Dosage: DATE OF MOST RECENT DOSE OF CHLORAMBUCIL: 30/SEP/2015 AT 8:50
     Route: 048
     Dates: start: 20150930
  3. SALINE [Concomitant]
     Active Substance: SODIUM CHLORIDE
     Route: 042
     Dates: start: 20150929, end: 20150929
  4. PARACETAMOL [Concomitant]
     Active Substance: ACETAMINOPHEN
     Indication: PREMEDICATION
     Route: 048
     Dates: start: 20150930, end: 20150930
  5. PARACETAMOL [Concomitant]
     Active Substance: ACETAMINOPHEN
     Route: 048
     Dates: start: 20151021, end: 20151021
  6. TAVEGYL [Concomitant]
     Active Substance: CLEMASTINE FUMARATE
  7. CLEMASTIN [Concomitant]
     Active Substance: CLEMASTINE
     Route: 048
     Dates: start: 20151021, end: 20151021
  8. SOLU?MEDROL [Concomitant]
     Active Substance: METHYLPREDNISOLONE SODIUM SUCCINATE
     Indication: PREMEDICATION
     Route: 042
     Dates: start: 20150930, end: 20150930
  9. ALLOPURINOL. [Concomitant]
     Active Substance: ALLOPURINOL
     Route: 048
     Dates: start: 20150927, end: 20160405
  10. OMEGA 3 [FISH OIL] [Concomitant]
     Active Substance: FISH OIL
     Route: 048
     Dates: end: 20160601
  11. METHYLPREDNISOLON [Concomitant]
     Active Substance: METHYLPREDNISOLONE
     Route: 042
     Dates: start: 20151021, end: 20151021
  12. CLEMASTIN [Concomitant]
     Active Substance: CLEMASTINE
     Indication: PREMEDICATION
     Route: 048
     Dates: start: 20150930, end: 20150930

REACTIONS (1)
  - Gilbert^s syndrome [Recovered/Resolved]

NARRATIVE: CASE EVENT DATE: 20150930
